FAERS Safety Report 9669636 (Version 1)
Quarter: 2013Q4

REPORT INFORMATION
  Report Type: Spontaneous
  Country: US (occurrence: None)
  Receive Date: 20131104
  Receipt Date: 20131104
  Transmission Date: 20140711
  Serious: Yes (Other)
  Sender: FDA-Public Use
  Company Number: None

PATIENT
  Age: 42 Year
  Sex: Male
  Weight: 90.72 kg

DRUGS (4)
  1. FENTANYL TRANSDERMAL SYSTEM [Suspect]
     Indication: PAIN
     Dosage: 50 MCG/HR  1 PATCH  EVERY 3 DAYS   ON THE SKIN
     Route: 062
     Dates: start: 201306
  2. CLONIDINE [Concomitant]
  3. LASORTAN [Concomitant]
  4. OXYCODONE [Concomitant]

REACTIONS (5)
  - Drug withdrawal syndrome [None]
  - Drug ineffective [None]
  - Pyrexia [None]
  - Blood pressure increased [None]
  - Pain [None]
